FAERS Safety Report 10736687 (Version 3)
Quarter: 2015Q3

REPORT INFORMATION
  Report Type: Report from Study
  Country: FR (occurrence: FR)
  Receive Date: 20150126
  Receipt Date: 20150702
  Transmission Date: 20151125
  Serious: Yes (Other)
  Sender: FDA-Public Use
  Company Number: FR-ASTELLAS-2015US001624

PATIENT
  Age: 6 Month
  Sex: Female
  Weight: 6 kg

DRUGS (4)
  1. VANCOMYCIN [Concomitant]
     Active Substance: VANCOMYCIN
     Indication: ACTINOMYCOTIC SKIN INFECTION
  2. VANCOMYCIN [Concomitant]
     Active Substance: VANCOMYCIN
     Indication: FEBRILE BONE MARROW APLASIA
     Route: 003
     Dates: start: 20141114, end: 20141125
  3. MICAFUNGIN [Suspect]
     Active Substance: MICAFUNGIN
     Indication: FUNGAL INFECTION
     Route: 065
     Dates: start: 20141016, end: 20141114
  4. DEXAMETHASONE. [Concomitant]
     Active Substance: DEXAMETHASONE
     Indication: LYMPHOCYTIC LEUKAEMIA
     Dosage: 0.5 MG, THRICE DAILY
     Route: 042
     Dates: start: 20141020, end: 20141111

REACTIONS (2)
  - Drug ineffective for unapproved indication [Unknown]
  - Mucormycosis [Recovered/Resolved]

NARRATIVE: CASE EVENT DATE: 20141112
